FAERS Safety Report 5794037-8 (Version None)
Quarter: 2008Q2

REPORT INFORMATION
  Report Type: 
  Country: None (occurrence: None)
  Receive Date: 20080627
  Receipt Date: 20080319
  Transmission Date: 20081010
  Serious: Yes (Other)
  Sender: FDA-Public Use
  Company Number: SE-PFIZER INC-2008011575

PATIENT
  Age: 68 Year
  Sex: Male

DRUGS (12)
  1. NEURONTIN [Suspect]
     Indication: NEURALGIA
     Dosage: DAILY DOSE:500MG
     Route: 048
  2. CHANTIX [Suspect]
     Dates: start: 20071101, end: 20080101
  3. KETOGAN [Suspect]
  4. LEVOTHYROXINE SODIUM [Suspect]
  5. OXYCONTIN [Suspect]
  6. SYMBICORT [Concomitant]
  7. LEVOTHYROXINE SODIUM [Concomitant]
  8. ATACAND [Concomitant]
  9. ASPIRIN [Concomitant]
  10. NOZINAN [Concomitant]
  11. ALVEDON [Concomitant]
  12. NICORETTE [Concomitant]

REACTIONS (26)
  - ABASIA [None]
  - ACTIVITIES OF DAILY LIVING IMPAIRED [None]
  - AMNESIA [None]
  - ANOREXIA [None]
  - APATHY [None]
  - COORDINATION ABNORMAL [None]
  - DEPRESSION [None]
  - DIZZINESS [None]
  - DRUG ADMINISTRATION ERROR [None]
  - DRUG INEFFECTIVE [None]
  - DRUG TOXICITY [None]
  - DYSPNOEA [None]
  - ERECTILE DYSFUNCTION [None]
  - FATIGUE [None]
  - GAIT DISTURBANCE [None]
  - HYPOACUSIS [None]
  - IRRITABILITY [None]
  - MASKED FACIES [None]
  - MUSCLE RIGIDITY [None]
  - MUSCLE SPASMS [None]
  - MUSCLE TWITCHING [None]
  - POOR PERSONAL HYGIENE [None]
  - SPEECH DISORDER [None]
  - SWELLING [None]
  - WEIGHT DECREASED [None]
  - WEIGHT INCREASED [None]
